FAERS Safety Report 4274971-0 (Version None)
Quarter: 2004Q1

REPORT INFORMATION
  Report Type: 
  Country: None (occurrence: None)
  Receive Date: 20040120
  Receipt Date: 19990905
  Transmission Date: 20041129
  Serious: No
  Sender: FDA-Public Use
  Company Number: 7157

PATIENT
  Age: 54 Year
  Sex: Male

DRUGS (1)
  1. MITOMYCIN [Suspect]
     Indication: BLADDER CANCER
     Dosage: INVES
     Route: 042
     Dates: start: 19971029, end: 19971029

REACTIONS (2)
  - NEUROPATHY [None]
  - PARESIS [None]
